FAERS Safety Report 9121776 (Version 1)
Quarter: 2013Q1

REPORT INFORMATION
  Report Type: Spontaneous
  Country: US (occurrence: US)
  Receive Date: 20130227
  Receipt Date: 20130227
  Transmission Date: 20140127
  Serious: No
  Sender: FDA-Public Use
  Company Number: US-BIOGENIDEC-2013BI018007

PATIENT
  Age: 43 Year
  Sex: Female

DRUGS (1)
  1. TYSABRI [Suspect]
     Indication: MULTIPLE SCLEROSIS
     Route: 042
     Dates: start: 20110927

REACTIONS (9)
  - Drug hypersensitivity [Not Recovered/Not Resolved]
  - Mumps [Not Recovered/Not Resolved]
  - Memory impairment [Not Recovered/Not Resolved]
  - Immune system disorder [Not Recovered/Not Resolved]
  - Epstein-Barr virus infection [Unknown]
  - Infectious mononucleosis [Unknown]
  - Varicella [Unknown]
  - Herpes zoster [Unknown]
  - Fatigue [Not Recovered/Not Resolved]
